FAERS Safety Report 8954188 (Version 1)
Quarter: 2012Q4

REPORT INFORMATION
  Report Type: 
  Country: FR (occurrence: FR)
  Receive Date: 20121207
  Receipt Date: 20121207
  Transmission Date: 20130627
  Serious: Yes (Hospitalization, Other)
  Sender: FDA-Public Use
  Company Number: FR-BAYER-2012-126265

PATIENT
  Age: 77 Year
  Sex: Male

DRUGS (2)
  1. NEXAVAR [Suspect]
     Indication: CARCINOMA HEPATOCELLULAR
     Dosage: UNK
     Dates: start: 201211, end: 20121119
  2. EMOLLIENTS AND PROTECTIVES [Concomitant]
     Indication: HAND AND FOOT SKIN REACTION
     Route: 061

REACTIONS (7)
  - Palmar-plantar erythrodysaesthesia syndrome [Recovering/Resolving]
  - Joint effusion [Recovering/Resolving]
  - Hypertension [Recovering/Resolving]
  - Hyperuricaemia [None]
  - Dehydration [None]
  - Confusional state [None]
  - Hypercalcaemia [None]
